FAERS Safety Report 7044858-9 (Version None)
Quarter: 2010Q4

REPORT INFORMATION
  Report Type: 
  Country: None (occurrence: None)
  Receive Date: 20101014
  Receipt Date: 20101005
  Transmission Date: 20110411
  Serious: Yes (Hospitalization, Other)
  Sender: FDA-Public Use
  Company Number: PHHY2010US42419

PATIENT
  Sex: Female

DRUGS (24)
  1. EXTAVIA [Suspect]
     Indication: MULTIPLE SCLEROSIS
     Dosage: UNK
     Route: 058
     Dates: start: 20050101
  2. EXTAVIA [Suspect]
     Dosage: 0.25 MG, QOD
     Route: 058
     Dates: start: 20100521
  3. EXTAVIA [Suspect]
     Dosage: 0.187 MG, QOD
     Route: 058
     Dates: start: 20100702
  4. EXTAVIA [Suspect]
     Dosage: 0.25 MG, QOD
     Route: 058
  5. EXTAVIA [Suspect]
     Dosage: 0.25 MG, QOD
     Route: 058
     Dates: start: 20100522
  6. STEROIDS NOS [Suspect]
     Dosage: UNK
     Route: 042
  7. ATENOLOL [Concomitant]
  8. LISINOPRIL [Concomitant]
  9. HYDROCHLOROTHIAZIDE [Concomitant]
     Dosage: UNK
  10. ADVAIR DISKUS 100/50 [Concomitant]
  11. ALBUTEROL [Concomitant]
  12. CALCIUM CARBONATE [Concomitant]
  13. VITAMIN D3 [Concomitant]
  14. FLAXSEED OIL [Concomitant]
  15. OMEPRAZOLE [Concomitant]
  16. ALGIN [Concomitant]
  17. MORPHINE [Concomitant]
  18. OXYCODONE HCL AND ACETAMINOPHEN [Concomitant]
  19. LYRICA [Concomitant]
     Dosage: UNK
  20. SINUS MEDICATION [Concomitant]
     Dosage: UNK
  21. CYMBALTA [Concomitant]
  22. MULTI-VITAMINS [Concomitant]
  23. ASCORBIC ACID [Concomitant]
  24. LEXAPRO [Concomitant]
     Dosage: 20 MG, QD

REACTIONS (17)
  - CHILLS [None]
  - DEPRESSED MOOD [None]
  - DRUG DOSE OMISSION [None]
  - FALL [None]
  - FATIGUE [None]
  - GAIT DISTURBANCE [None]
  - HALLUCINATION, VISUAL [None]
  - HEADACHE [None]
  - INJECTION SITE ERYTHEMA [None]
  - LOSS OF CONSCIOUSNESS [None]
  - MULTIPLE SCLEROSIS RELAPSE [None]
  - MUSCULOSKELETAL PAIN [None]
  - NAUSEA [None]
  - PAIN IN EXTREMITY [None]
  - PSYCHOTIC DISORDER [None]
  - RHINORRHOEA [None]
  - SNEEZING [None]
